FAERS Safety Report 8243468-5 (Version None)
Quarter: 2012Q1

REPORT INFORMATION
  Report Type: 
  Country: None (occurrence: None)
  Receive Date: 20120329
  Receipt Date: 20120323
  Transmission Date: 20120608
  Serious: Yes (Death, Other)
  Sender: FDA-Public Use
  Company Number: KR-ABBOTT-12P-090-0889540-00

PATIENT
  Age: 36 Year
  Sex: Male
  Weight: 54 kg

DRUGS (20)
  1. FUNGIZONE [Suspect]
     Indication: PRODUCT USED FOR UNKNOWN INDICATION
     Dates: start: 20100413, end: 20100417
  2. LANSTON [Concomitant]
     Indication: GASTROINTESTINAL DISORDER
     Dosage: DAILY DOSE: 15MG
     Route: 048
     Dates: start: 20100206, end: 20100322
  3. FAMOTIDINE [Concomitant]
     Indication: PROPHYLAXIS
  4. GANCICLOVIR SODIUM [Concomitant]
     Indication: CYTOMEGALOVIRUS INFECTION
     Dosage: DAILY DOSE: 325MG
     Route: 042
     Dates: start: 20100228, end: 20100302
  5. DIFLUCAN [Concomitant]
     Indication: CANDIDIASIS
     Dosage: DAILY DOSE: 50MG
     Route: 048
     Dates: start: 20100126, end: 20100420
  6. SURFOLASE [Concomitant]
     Indication: UPPER RESPIRATORY TRACT INFECTION
     Dosage: DAILY DOSE: 200MG
     Route: 048
     Dates: start: 20100131, end: 20100217
  7. 3TC/AZT [Concomitant]
     Indication: ANTIRETROVIRAL THERAPY
     Dosage: DAILY DOSE: 2 TABS
     Dates: start: 20100309, end: 20100420
  8. GADIN [Concomitant]
     Indication: GASTROINTESTINAL DISORDER
     Dosage: DAILY DOSE: 50MG
     Dates: start: 20100126, end: 20100411
  9. JEIL PETHIDINE HCL INJ. 25MG/0.5ML [Concomitant]
     Indication: PAIN
     Dosage: DAILY DOSE: 1 AMP
     Route: 042
     Dates: start: 20100216, end: 20100418
  10. LANSTON [Concomitant]
     Indication: PROPHYLAXIS
  11. FAMOTIDINE [Concomitant]
     Indication: GASTROINTESTINAL DISORDER
     Dosage: DAILY DOSE: 40MG
     Route: 048
     Dates: start: 20100128, end: 20100326
  12. METFORMIN HCL [Concomitant]
     Indication: DIABETES MELLITUS
     Dosage: DAILY DOSE: 500MG
     Route: 048
     Dates: start: 20100306, end: 20100315
  13. GADIN [Concomitant]
     Indication: PROPHYLAXIS
  14. KALETRA [Suspect]
     Route: 048
     Dates: start: 20100410, end: 20100420
  15. HUMULIN R [Concomitant]
     Indication: DIABETES MELLITUS
     Dosage: DAILY DOSE: 10 IU
     Route: 058
     Dates: start: 20100125, end: 20100420
  16. KALETRA [Suspect]
     Indication: HIV INFECTION
     Dates: start: 20100131, end: 20100402
  17. AVELOX [Concomitant]
     Indication: UPPER RESPIRATORY TRACT INFECTION
     Dosage: DAILY DOSE: 400MG
     Route: 042
     Dates: start: 20100125, end: 20100402
  18. APIDRA SOLOSTAR [Concomitant]
     Indication: DIABETES MELLITUS
     Dosage: DAILY DOSE: 10 IU
     Route: 058
     Dates: start: 20100125, end: 20100420
  19. URSA [Concomitant]
     Indication: PROPHYLAXIS
     Dosage: DAILY DOSE: 3 TABS
     Route: 048
     Dates: start: 20100125, end: 20100420
  20. URSA [Concomitant]
     Indication: LIVER DISORDER

REACTIONS (13)
  - METABOLIC ACIDOSIS [None]
  - CANDIDIASIS [None]
  - BLOOD PRESSURE DECREASED [None]
  - GASTROINTESTINAL HAEMORRHAGE [None]
  - BLOOD BILIRUBIN INCREASED [None]
  - SPLENOMEGALY [None]
  - BLOOD PRESSURE INADEQUATELY CONTROLLED [None]
  - RENAL FAILURE ACUTE [None]
  - URINE OUTPUT DECREASED [None]
  - DISSEMINATED INTRAVASCULAR COAGULATION [None]
  - LIVER DISORDER [None]
  - PAIN [None]
  - DUODENITIS [None]
